FAERS Safety Report 8302117-8 (Version None)
Quarter: 2012Q2

REPORT INFORMATION
  Report Type: 
  Country: None (occurrence: None)
  Receive Date: 20120420
  Receipt Date: 20120411
  Transmission Date: 20120825
  Serious: Yes (Other)
  Sender: FDA-Public Use
  Company Number: GB-BRISTOL-MYERS SQUIBB COMPANY-16513202

PATIENT
  Age: 64 Year
  Sex: Female
  Weight: 54 kg

DRUGS (20)
  1. SIMVASTATIN [Concomitant]
     Dates: start: 20120103
  2. TRAMADOL HYDROCHLORIDE [Concomitant]
     Dates: start: 20120103
  3. ACETAMINOPHEN [Concomitant]
     Dates: start: 20120208, end: 20120216
  4. CETIRIZINE HCL [Concomitant]
     Dosage: ASLSO TAKEN 23JAN12-30JAN12(7D) 13MAR12-20MAR12(7D)
     Dates: start: 20120103, end: 20120110
  5. CARVEDILOL [Concomitant]
     Dates: start: 20120103
  6. LANSOPRAZOLE [Concomitant]
     Dates: start: 20120103
  7. DIETHYLAMINE SALICYLATE [Concomitant]
     Dates: start: 20120208, end: 20120209
  8. OMEPRAZOLE [Concomitant]
     Dates: start: 20120208, end: 20120307
  9. ACETAMINOPHEN AND CODEINE PHOSPHATE [Concomitant]
     Dates: start: 20120315, end: 20120322
  10. LEVOTHYROXINE SODIUM [Concomitant]
     Dates: start: 20120103
  11. LOSARTAN POTASSIUM [Concomitant]
     Dates: start: 20120103
  12. E45 CREAM [Concomitant]
     Dates: start: 20120103
  13. AMOXICILLIN [Concomitant]
     Dosage: 02MAR12-7MAR12(5D) 29MAR12-ONG
     Dates: start: 20120302, end: 20120307
  14. AMOXICILLIN AND CLAVULANATE POTASSIUM [Concomitant]
     Dates: start: 20120315, end: 20120322
  15. SAXAGLIPTIN [Suspect]
     Dosage: PERIOD:87DAYS
     Dates: start: 20120103
  16. FERROUS FUMARATE [Concomitant]
     Dates: start: 20111011
  17. ALBUTEROL [Concomitant]
     Dates: start: 20120103
  18. MACROGOL 3350 [Concomitant]
     Dates: start: 20120208, end: 20120218
  19. LACTULOSE [Concomitant]
     Dates: start: 20120227, end: 20120314
  20. GLICLAZIDE [Concomitant]
     Dates: start: 20120103, end: 20120228

REACTIONS (2)
  - JAUNDICE [None]
  - LIVER FUNCTION TEST ABNORMAL [None]
